FAERS Safety Report 7344622-7 (Version None)
Quarter: 2011Q1

REPORT INFORMATION
  Report Type: 
  Country: None (occurrence: None)
  Receive Date: 20110308
  Receipt Date: 20110308
  Transmission Date: 20110831
  Serious: Yes (Other)
  Sender: FDA-Public Use
  Company Number: None

PATIENT
  Sex: Male
  Weight: 142.4295 kg

DRUGS (2)
  1. LEVAQUIN [Suspect]
     Indication: UPPER RESPIRATORY TRACT INFECTION
     Dates: start: 20110222, end: 20110228
  2. LEVAQUIN [Suspect]
     Indication: SINUSITIS
     Dates: start: 20110222, end: 20110228

REACTIONS (1)
  - MUSCLE RUPTURE [None]
